FAERS Safety Report 6466346-0 (Version None)
Quarter: 2009Q4

REPORT INFORMATION
  Report Type: 
  Country: None (occurrence: None)
  Receive Date: 20091202
  Receipt Date: 20091123
  Transmission Date: 20100525
  Serious: Yes (Other)
  Sender: FDA-Public Use
  Company Number: FR-BAYER-200940468GPV

PATIENT
  Age: 69 Year
  Sex: Female

DRUGS (3)
  1. NEXAVAR [Suspect]
     Indication: HEPATIC CANCER METASTATIC
     Dosage: UNIT DOSE: 200 MG
     Route: 048
     Dates: start: 20080701
  2. AERIUS [Concomitant]
     Dates: start: 20090607
  3. SINGULAIR [Concomitant]
     Dates: start: 20090607

REACTIONS (9)
  - ANGIOEDEMA [None]
  - BLOOD PRESSURE INCREASED [None]
  - CHILLS [None]
  - ERYTHEMA [None]
  - GLOSSODYNIA [None]
  - HYPERSENSITIVITY [None]
  - MALAISE [None]
  - PYREXIA [None]
  - TACHYCARDIA [None]
